FAERS Safety Report 25066437 (Version 1)
Quarter: 2025Q1

REPORT INFORMATION
  Report Type: Spontaneous
  Country: US (occurrence: US)
  Receive Date: 20250312
  Receipt Date: 20250312
  Transmission Date: 20250408
  Serious: Yes (Other)
  Sender: GLAXOSMITHKLINE
  Company Number: US-GSK-US2025026570

PATIENT

DRUGS (2)
  1. JEMPERLI [Suspect]
     Active Substance: DOSTARLIMAB-GXLY
     Indication: Endometrial cancer
     Dates: start: 202309
  2. JEMPERLI [Suspect]
     Active Substance: DOSTARLIMAB-GXLY
     Dates: start: 202401

REACTIONS (3)
  - Pulmonary oedema [Unknown]
  - Coronary artery occlusion [Unknown]
  - Left ventricular dysfunction [Unknown]
